FAERS Safety Report 9490350 (Version 1)
Quarter: 2013Q3

REPORT INFORMATION
  Report Type: Spontaneous
  Country: DE (occurrence: DE)
  Receive Date: 20130830
  Receipt Date: 20130830
  Transmission Date: 20140515
  Serious: Yes (Other)
  Sender: FDA-Public Use
  Company Number: DE-ROCHE-1268289

PATIENT
  Sex: Female

DRUGS (1)
  1. XELODA [Suspect]
     Indication: BREAST CANCER METASTATIC
     Route: 065

REACTIONS (3)
  - Anxiety [Unknown]
  - Sense of oppression [Unknown]
  - Sleep disorder [Unknown]
